FAERS Safety Report 7016754-4 (Version None)
Quarter: 2010Q3

REPORT INFORMATION
  Report Type: 
  Country: None (occurrence: None)
  Receive Date: 20100909
  Receipt Date: 20100714
  Transmission Date: 20110219
  Serious: No
  Sender: FDA-Public Use
  Company Number: 2010SP038923

PATIENT
  Sex: Female

DRUGS (2)
  1. SAPHRIS [Suspect]
     Indication: BIPOLAR DISORDER
     Dosage: 5 MG;BID;SL, 2 DAYS
     Route: 060
  2. XANAX (CON.) [Concomitant]

REACTIONS (2)
  - FEELING ABNORMAL [None]
  - SEDATION [None]
